FAERS Safety Report 5821824-X (Version None)
Quarter: 2008Q3

REPORT INFORMATION
  Report Type: 
  Country: None (occurrence: None)
  Receive Date: 20080724
  Receipt Date: 20080708
  Transmission Date: 20090109
  Serious: No
  Sender: FDA-Public Use
  Company Number: US-BOEHRINGER INGELHEIM GMBH, GERMANY-2008-BP-08390BP

PATIENT
  Age: 67 Year
  Sex: Female

DRUGS (13)
  1. SPIRIVA [Suspect]
     Indication: CHRONIC OBSTRUCTIVE PULMONARY DISEASE
     Route: 055
     Dates: start: 20080201, end: 20080201
  2. SPIRIVA [Suspect]
     Indication: RESPIRATORY FAILURE
     Route: 055
     Dates: start: 20080410
  3. LOVASTATIN [Concomitant]
     Dosage: X1 DAILY
  4. BLOOD PRESSURE MEDS [Concomitant]
  5. PLENDIL [Concomitant]
  6. DYAZIDE [Concomitant]
  7. WELLBUTRIN [Concomitant]
     Dosage: TIMES 1 DAILY
  8. PREDNISONE TAB [Concomitant]
  9. ALBUTEROL [Concomitant]
     Dosage: AS NEEDED
  10. MULTI-VITAMIN [Concomitant]
     Dosage: 1 DAILY
  11. ASPIRIN [Concomitant]
  12. OMEGA FISH OIL [Concomitant]
  13. CALCIUM [Concomitant]
     Dosage: 600 MG/ 400 MG TWICE DAILY

REACTIONS (1)
  - DYSPNOEA [None]
